FAERS Safety Report 5743982-8 (Version None)
Quarter: 2008Q2

REPORT INFORMATION
  Report Type: 
  Country: None (occurrence: None)
  Receive Date: 20080516
  Receipt Date: 20080516
  Transmission Date: 20081010
  Serious: Yes (Death, Life-Threatening, Hospitalization)
  Sender: FDA-Public Use
  Company Number: None

PATIENT
  Age: 88 Year
  Sex: Female
  Weight: 32.659 kg

DRUGS (1)
  1. DIGITEK .125 MG ACTAVIS TOWTOWA/ [Suspect]
     Indication: HEART RATE IRREGULAR
     Dosage: 1 MONTH 13 DAYS
     Dates: start: 20080128, end: 20080313

REACTIONS (13)
  - ANOREXIA [None]
  - DIZZINESS [None]
  - FALL [None]
  - GENERAL PHYSICAL HEALTH DETERIORATION [None]
  - HALLUCINATION, VISUAL [None]
  - HEADACHE [None]
  - HYPOTENSION [None]
  - NAUSEA [None]
  - ORAL INTAKE REDUCED [None]
  - PNEUMONIA ASPIRATION [None]
  - POLLAKIURIA [None]
  - URINE OUTPUT DECREASED [None]
  - VOMITING [None]
